FAERS Safety Report 7457157-8 (Version None)
Quarter: 2011Q2

REPORT INFORMATION
  Report Type: 
  Country: None (occurrence: None)
  Receive Date: 20110504
  Receipt Date: 20110418
  Transmission Date: 20111010
  Serious: Yes (Death)
  Sender: FDA-Public Use
  Company Number: DE-ROCHE-773530

PATIENT
  Sex: Female
  Weight: 70 kg

DRUGS (4)
  1. FLUOROURACIL [Concomitant]
     Dates: start: 20101026, end: 20110221
  2. FOLINIC ACID [Concomitant]
     Dates: start: 20101026, end: 20110221
  3. BEVACIZUMAB [Suspect]
     Route: 065
     Dates: start: 20101026, end: 20110221
  4. IRINOTECAN [Concomitant]
     Dates: start: 20101026, end: 20110221

REACTIONS (2)
  - NO THERAPEUTIC RESPONSE [None]
  - NEOPLASM MALIGNANT [None]
